FAERS Safety Report 8999152 (Version 1)
Quarter: 2013Q1

REPORT INFORMATION
  Report Type: Spontaneous
  Country: FR (occurrence: FR)
  Receive Date: 20130103
  Receipt Date: 20130103
  Transmission Date: 20140127
  Serious: Yes (Hospitalization, Other)
  Sender: FDA-Public Use
  Company Number: FR-JNJFOC-20121212116

PATIENT
  Age: 52 Year
  Sex: Male

DRUGS (10)
  1. REMICADE [Suspect]
     Indication: RHEUMATOID ARTHRITIS
     Route: 042
     Dates: start: 20120906, end: 20120906
  2. REMICADE [Suspect]
     Indication: RHEUMATOID ARTHRITIS
     Route: 042
     Dates: start: 201108
  3. REMICADE [Suspect]
     Indication: RHEUMATOID ARTHRITIS
     Route: 042
     Dates: start: 201204
  4. ORENCIA [Suspect]
     Indication: PRODUCT USED FOR UNKNOWN INDICATION
     Route: 042
     Dates: start: 20121120
  5. CELEBREX [Concomitant]
     Route: 048
     Dates: end: 20121202
  6. CORTANCYL [Concomitant]
     Route: 048
     Dates: end: 20121202
  7. NOVONORM [Concomitant]
     Indication: TYPE 1 DIABETES MELLITUS
     Route: 065
  8. STAGID [Concomitant]
     Indication: TYPE 1 DIABETES MELLITUS
     Route: 065
  9. INSULIN [Concomitant]
     Indication: TYPE 1 DIABETES MELLITUS
     Route: 065
  10. LEVEMIR [Concomitant]
     Indication: TYPE 1 DIABETES MELLITUS
     Route: 065

REACTIONS (5)
  - Meningitis herpes [Not Recovered/Not Resolved]
  - Hypersensitivity [Unknown]
  - Tuberculosis [Unknown]
  - Dysphonia [Unknown]
  - Odynophagia [Unknown]
